FAERS Safety Report 9465752 (Version 1)
Quarter: 2013Q3

REPORT INFORMATION
  Report Type: Spontaneous
  Country: US (occurrence: US)
  Receive Date: 20130820
  Receipt Date: 20130820
  Transmission Date: 20140515
  Serious: Yes (Other)
  Sender: FDA-Public Use
  Company Number: US-ASTELLAS-2013US004651

PATIENT
  Age: 36 Year
  Sex: Male
  Weight: 131 kg

DRUGS (14)
  1. AMBISOME [Suspect]
     Indication: PRODUCT USED FOR UNKNOWN INDICATION
     Dosage: UNK
     Route: 042
     Dates: start: 20120919, end: 20120921
  2. PROGRAF [Concomitant]
     Indication: STEM CELL TRANSPLANT
     Dosage: 0.5 MG, BID
     Route: 048
     Dates: start: 20120919
  3. DILAUDID [Concomitant]
     Indication: PAIN
     Dosage: UNK
     Route: 041
     Dates: start: 20120918
  4. ANTIFUNGALS FOR SYSTEMIC USE [Concomitant]
     Indication: PHAEHYPHOMYCOSIS
     Dosage: UNK
     Route: 065
     Dates: start: 20120919
  5. FOLIC ACID [Concomitant]
     Indication: PRODUCT USED FOR UNKNOWN INDICATION
     Dosage: 1 MG, UID/QD
     Route: 048
  6. MAGNESIUM OXIDE [Concomitant]
     Indication: PRODUCT USED FOR UNKNOWN INDICATION
     Dosage: 400 MG, TID
     Route: 048
  7. MULTIVITAMINS, COMBINATIONS [Concomitant]
     Indication: PRODUCT USED FOR UNKNOWN INDICATION
     Dosage: 1 DF, UID/QD
     Route: 048
  8. CALCIUM CARBONATE [Concomitant]
     Indication: PRODUCT USED FOR UNKNOWN INDICATION
     Dosage: 500 MG, BID
     Route: 048
  9. ACYCLOVIR                          /00587301/ [Concomitant]
     Indication: PRODUCT USED FOR UNKNOWN INDICATION
     Dosage: 400 MG, TID
     Route: 048
  10. POSACONAZOLE [Concomitant]
     Indication: PRODUCT USED FOR UNKNOWN INDICATION
     Dosage: 400 MG, BID
     Route: 048
  11. BACTRIM [Concomitant]
     Indication: PRODUCT USED FOR UNKNOWN INDICATION
     Dosage: 1 DF, UID/QD
     Route: 048
  12. TERBINAFINE HYDROCHLORIDE [Concomitant]
     Indication: PRODUCT USED FOR UNKNOWN INDICATION
     Dosage: 250 MG, BID
     Route: 048
  13. PROCHLORPERAZINE [Concomitant]
     Indication: PRODUCT USED FOR UNKNOWN INDICATION
     Dosage: 5-10 MG, Q6 HOURS
     Route: 048
  14. SEVELAMER CARBONATE [Concomitant]
     Indication: PRODUCT USED FOR UNKNOWN INDICATION
     Dosage: 800 MG, TID
     Route: 048

REACTIONS (2)
  - Dyspnoea [Recovered/Resolved]
  - Renal failure acute [Recovering/Resolving]
